FAERS Safety Report 9973800 (Version 1)
Quarter: 2014Q1

REPORT INFORMATION
  Report Type: Spontaneous
  Country: None (occurrence: US)
  Receive Date: 20140306
  Receipt Date: 20140306
  Transmission Date: 20141002
  Serious: Yes (Other)
  Sender: FDA-Public Use
  Company Number: US-TEVA-466034USA

PATIENT
  Sex: Female
  Weight: 40.86 kg

DRUGS (2)
  1. AMPHETAMINE W/DEXTROAMPHETAMINE [Suspect]
     Indication: PRODUCT USED FOR UNKNOWN INDICATION
  2. PROZAC [Concomitant]
     Indication: DEPRESSION

REACTIONS (10)
  - Suicidal ideation [Unknown]
  - Activities of daily living impaired [Unknown]
  - Impaired driving ability [Unknown]
  - Aphagia [Unknown]
  - Feeling abnormal [Unknown]
  - Cystitis [Unknown]
  - Herpes zoster [Unknown]
  - Malaise [Unknown]
  - Weight decreased [Unknown]
  - Product quality issue [Unknown]
